FAERS Safety Report 5744493-6 (Version None)
Quarter: 2008Q2

REPORT INFORMATION
  Report Type: 
  Country: None (occurrence: None)
  Receive Date: 20080516
  Receipt Date: 20080512
  Transmission Date: 20081010
  Serious: Yes (Other)
  Sender: FDA-Public Use
  Company Number: 2008SP008963

PATIENT
  Age: 42 Year
  Sex: Male
  Weight: 213.1906 kg

DRUGS (2)
  1. INTRON A [Suspect]
     Indication: HEPATITIS C
     Dates: start: 19910101, end: 19910101
  2. INTRON A [Suspect]
     Indication: HEPATITIS C
     Dates: start: 20080506

REACTIONS (8)
  - ANKLE FRACTURE [None]
  - FALL [None]
  - GAIT DISTURBANCE [None]
  - HEPATIC CIRRHOSIS [None]
  - HEPATIC PAIN [None]
  - NAUSEA [None]
  - VISUAL ACUITY REDUCED [None]
  - WEIGHT DECREASED [None]
